FAERS Safety Report 7004047-0 (Version None)
Quarter: 2010Q3

REPORT INFORMATION
  Report Type: 
  Country: None (occurrence: None)
  Receive Date: 20100920
  Receipt Date: 20100120
  Transmission Date: 20110219
  Serious: No
  Sender: FDA-Public Use
  Company Number: US-WYE-H13117410

PATIENT
  Age: 44 Year
  Sex: Female

DRUGS (9)
  1. PRISTIQ [Suspect]
     Indication: DEPRESSION
     Route: 048
     Dates: start: 20080501, end: 20080101
  2. PRISTIQ [Suspect]
     Route: 048
     Dates: start: 20080101, end: 20080101
  3. PRISTIQ [Suspect]
     Route: 048
     Dates: start: 20080101, end: 20080801
  4. KLONOPIN [Concomitant]
  5. KEPPRA [Concomitant]
  6. IMITREX [Concomitant]
  7. ORTHO-NOVUM [Concomitant]
  8. ABILIFY [Concomitant]
  9. PLAQUENIL [Concomitant]

REACTIONS (1)
  - DRUG INEFFECTIVE [None]
